FAERS Safety Report 9152918 (Version 3)
Quarter: 2013Q3

REPORT INFORMATION
  Report Type: Spontaneous
  Country: US (occurrence: US)
  Receive Date: 20130308
  Receipt Date: 20130906
  Transmission Date: 20140515
  Serious: Yes (Other)
  Sender: FDA-Public Use
  Company Number: US-BRACCO-009246

PATIENT
  Age: 60 Year
  Sex: Male

DRUGS (1)
  1. MULTIHANCE [Suspect]
     Indication: NUCLEAR MAGNETIC RESONANCE IMAGING BRAIN
     Route: 042
     Dates: start: 20130215, end: 20130215

REACTIONS (2)
  - Cardiac arrest [Recovered/Resolved]
  - Burning sensation [Recovered/Resolved]
